FAERS Safety Report 17404672 (Version 2)
Quarter: 2020Q2

REPORT INFORMATION
  Report Type: Report from Study
  Country: US (occurrence: US)
  Receive Date: 20200211
  Receipt Date: 20200401
  Transmission Date: 20200713
  Serious: No
  Sender: FDA-Public Use
  Company Number: NVSC2020US036187

PATIENT
  Sex: Female

DRUGS (2)
  1. GILENYA [Suspect]
     Active Substance: FINGOLIMOD HYDROCHLORIDE
     Indication: MULTIPLE SCLEROSIS
     Dosage: 0.5 MG, QD
     Route: 048
     Dates: start: 20181213
  2. GILENYA [Suspect]
     Active Substance: FINGOLIMOD HYDROCHLORIDE
     Dosage: 0.5 MG ONCE DAILY ONLY 5 DAYS A WEEK
     Route: 048

REACTIONS (5)
  - Malaise [Unknown]
  - White blood cell count decreased [Unknown]
  - Product dose omission [Unknown]
  - Nasopharyngitis [Unknown]
  - Prescribed underdose [Unknown]
